FAERS Safety Report 4723324-7 (Version None)
Quarter: 2005Q3

REPORT INFORMATION
  Report Type: 
  Country: None (occurrence: None)
  Receive Date: 20050719
  Receipt Date: 20050228
  Transmission Date: 20060218
  Serious: Yes (Hospitalization)
  Sender: FDA-Public Use
  Company Number: 2005BI005024

PATIENT
  Age: 20 Year
  Sex: Male
  Weight: 108.8633 kg

DRUGS (2)
  1. AVONEX [Suspect]
     Indication: MULTIPLE SCLEROSIS
     Dosage: 30 UG; QW; IM;  30 UG; Q5D; IM
     Route: 030
     Dates: start: 20000201, end: 20000501
  2. AVONEX [Suspect]
     Indication: MULTIPLE SCLEROSIS
     Dosage: 30 UG; QW; IM;  30 UG; Q5D; IM
     Route: 030
     Dates: start: 20000501, end: 20030701

REACTIONS (6)
  - BLADDER DISORDER [None]
  - BLOOD PRESSURE INCREASED [None]
  - FATIGUE [None]
  - INFLUENZA LIKE ILLNESS [None]
  - MIGRAINE [None]
  - MULTIPLE SCLEROSIS RELAPSE [None]
